FAERS Safety Report 11840099 (Version 3)
Quarter: 2016Q1

REPORT INFORMATION
  Report Type: Spontaneous
  Country: US (occurrence: US)
  Receive Date: 20151216
  Receipt Date: 20160304
  Transmission Date: 20160525
  Serious: Yes (Hospitalization)
  Sender: FDA-Public Use
  Company Number: US-BAYER-2015-486720

PATIENT
  Age: 26 Year
  Sex: Female
  Weight: 141.5 kg

DRUGS (1)
  1. MIRENA [Suspect]
     Active Substance: LEVONORGESTREL
     Indication: CONTRACEPTION
     Dosage: 20 MCG/24HR, CONT
     Route: 015
     Dates: start: 20140917, end: 20150908

REACTIONS (10)
  - Depression [None]
  - Medical device pain [None]
  - Device issue [None]
  - Embedded device [None]
  - Anxiety [None]
  - Somatic symptom disorder [None]
  - Salpingo-oophorectomy [None]
  - Ectopic pregnancy with contraceptive device [None]
  - Drug ineffective [None]
  - Menorrhagia [None]

NARRATIVE: CASE EVENT DATE: 2015
